FAERS Safety Report 5655170-4 (Version None)
Quarter: 2008Q1

REPORT INFORMATION
  Report Type: 
  Country: None (occurrence: None)
  Receive Date: 20080307
  Receipt Date: 20080228
  Transmission Date: 20080703
  Serious: Yes (Hospitalization)
  Sender: FDA-Public Use
  Company Number: IT-BAYER-200814085GPV

PATIENT
  Age: 65 Year
  Sex: Male

DRUGS (1)
  1. ASPIRINA C EFFERVESCENTE (ACETYLSALICILYC ACID) [Suspect]
     Indication: ARTHROPATHY
     Dosage: TOTAL DAILY DOSE: 400 MG  UNIT DOSE: 400 MG
     Route: 048
     Dates: start: 20080217, end: 20080218

REACTIONS (2)
  - GASTRIC ULCER HAEMORRHAGE [None]
  - GASTRITIS EROSIVE [None]
